FAERS Safety Report 18322292 (Version 7)
Quarter: 2021Q1

REPORT INFORMATION
  Report Type: Report from Study
  Country: BR (occurrence: BR)
  Receive Date: 20200929
  Receipt Date: 20210121
  Transmission Date: 20210419
  Serious: Yes (Death, Life-Threatening)
  Sender: FDA-Public Use
  Company Number: BR-ROCHE-2681808

PATIENT
  Age: 20 Year
  Sex: Male
  Weight: 62 kg

DRUGS (97)
  1. OMEPRAZOLE. [Concomitant]
     Active Substance: OMEPRAZOLE
     Dates: start: 20200908, end: 20200916
  2. DIPYRONE [Concomitant]
     Active Substance: DIPYRONE
     Dates: start: 20200913, end: 20200913
  3. THIAMINE. [Concomitant]
     Active Substance: THIAMINE
     Dates: start: 20200915, end: 20200922
  4. POLYMYXIN [Concomitant]
     Active Substance: POLYMYXIN
     Dosage: 4.5 AMPULE
     Dates: start: 20200915, end: 20200916
  5. MEROPENEM. [Concomitant]
     Active Substance: MEROPENEM
     Indication: PNEUMONIA
     Dates: start: 20200915, end: 20200916
  6. ENCRISE [Concomitant]
     Dosage: 1 AMPULE
     Dates: start: 20200922, end: 20200922
  7. OXYGEN. [Concomitant]
     Active Substance: OXYGEN
     Dosage: 15 L/MIN
     Route: 055
     Dates: start: 20200922
  8. OXYGEN. [Concomitant]
     Active Substance: OXYGEN
     Dosage: 12 L/MIN
     Route: 055
     Dates: start: 20200911
  9. OXYGEN. [Concomitant]
     Active Substance: OXYGEN
     Dosage: 9 L/MIN
     Route: 055
     Dates: start: 20200902
  10. OXYGEN. [Concomitant]
     Active Substance: OXYGEN
     Dosage: 10 L/MIN SUBSEQUENT DOSES ON 16/SEP/2020, 12/SEP/2020, 10/SEP/2020
     Route: 055
     Dates: start: 20200913
  11. OXYGEN. [Concomitant]
     Active Substance: OXYGEN
     Dosage: 5 L/MIN
     Route: 055
     Dates: start: 20200909
  12. ENOXAPARIN [Concomitant]
     Active Substance: ENOXAPARIN
     Dates: start: 20200909, end: 20200922
  13. ROCURONIUM [Concomitant]
     Active Substance: ROCURONIUM BROMIDE
     Dates: start: 20200922, end: 20200922
  14. INSULIN REGULAR [Concomitant]
     Active Substance: INSULIN NOS
     Dates: start: 20200905, end: 20200910
  15. HALDOL [Concomitant]
     Active Substance: HALOPERIDOL
     Dates: start: 20200910, end: 20200910
  16. POLYMYXIN [Concomitant]
     Active Substance: POLYMYXIN
     Dosage: 4.5 AMPULE
     Dates: start: 20200922, end: 20200922
  17. SCOPOLAMINE [Concomitant]
     Active Substance: SCOPOLAMINE
     Dates: start: 20200911, end: 20200916
  18. OXYGEN. [Concomitant]
     Active Substance: OXYGEN
     Dosage: SUBSEQUENT DOSES ON 06/SEP/2020, 08/SEP/2020
     Route: 007
     Dates: start: 20200907
  19. CODEINE [Concomitant]
     Active Substance: CODEINE
     Indication: COUGH
     Dates: start: 20200902, end: 20200903
  20. DEXTROKETAMINE [Concomitant]
     Dates: start: 20200922, end: 20200922
  21. NORADRENALINE [Concomitant]
     Active Substance: NOREPINEPHRINE
     Dates: start: 20200921, end: 20200922
  22. DORMONID [Concomitant]
     Active Substance: MIDAZOLAM MALEATE
     Indication: SEDATION
     Dates: start: 20200903, end: 20200908
  23. DORMONID [Concomitant]
     Active Substance: MIDAZOLAM MALEATE
     Dates: start: 20200922, end: 20200922
  24. LACTATED RINGERS SOLUTION [Concomitant]
     Active Substance: CALCIUM CHLORIDE\POTASSIUM CHLORIDE\SODIUM CHLORIDE\SODIUM LACTATE
     Dates: start: 20200913, end: 20200914
  25. LINEZOLID. [Concomitant]
     Active Substance: LINEZOLID
     Indication: BACTERIAL INFECTION
     Dates: start: 20200922, end: 20200922
  26. OXYGEN. [Concomitant]
     Active Substance: OXYGEN
     Dosage: 12 L/MIN SUBSEQUENT DOSES ON 16/SEP/2020
     Route: 055
     Dates: start: 20200915
  27. OXYGEN. [Concomitant]
     Active Substance: OXYGEN
     Route: 007
     Dates: start: 20200904
  28. OXYGEN. [Concomitant]
     Active Substance: OXYGEN
     Dosage: 7 L/MIN ON 02/SEP/2020
     Route: 055
     Dates: start: 20200914
  29. DIPYRONE [Concomitant]
     Active Substance: DIPYRONE
     Indication: COVID-19
     Dates: start: 20200908, end: 20200908
  30. DIPYRONE [Concomitant]
     Active Substance: DIPYRONE
     Dates: start: 20200919, end: 20200922
  31. PRECEDEX [Concomitant]
     Active Substance: DEXMEDETOMIDINE HYDROCHLORIDE
     Indication: ANXIETY
     Dates: start: 20200908, end: 20200914
  32. NORADRENALINE [Concomitant]
     Active Substance: NOREPINEPHRINE
     Dates: start: 20200916, end: 20200916
  33. INSULIN REGULAR [Concomitant]
     Active Substance: INSULIN NOS
     Dates: start: 20200909, end: 20200909
  34. INSULIN REGULAR [Concomitant]
     Active Substance: INSULIN NOS
     Dates: start: 20200911, end: 20200911
  35. INSULIN REGULAR [Concomitant]
     Active Substance: INSULIN NOS
     Dates: start: 20200914, end: 20200922
  36. HALDOL [Concomitant]
     Active Substance: HALOPERIDOL
     Dates: start: 20200906, end: 20200906
  37. METHADONE [Concomitant]
     Active Substance: METHADONE HYDROCHLORIDE
     Indication: COVID-19
     Dates: start: 20200908, end: 20200913
  38. VANCOMYCIN [Concomitant]
     Active Substance: VANCOMYCIN
     Indication: PNEUMONIA
     Dates: start: 20200915, end: 20200915
  39. ADRENALINE [Concomitant]
     Active Substance: EPINEPHRINE
     Indication: SEPTIC SHOCK
     Dates: start: 20200922, end: 20200922
  40. OXYGEN. [Concomitant]
     Active Substance: OXYGEN
     Dosage: 11 L/MIN
     Route: 055
     Dates: start: 20200914
  41. OXYGEN. [Concomitant]
     Active Substance: OXYGEN
     Dosage: 14 L/MIN
     Route: 055
     Dates: start: 20200912
  42. OXYGEN. [Concomitant]
     Active Substance: OXYGEN
     Route: 007
     Dates: start: 20200904
  43. OXYGEN. [Concomitant]
     Active Substance: OXYGEN
     Dosage: SUBSEQUENT DOSES ON 03/SEP/2020
     Route: 007
     Dates: start: 20200922
  44. OXYGEN. [Concomitant]
     Active Substance: OXYGEN
     Dosage: 8 L/MIN
     Route: 055
     Dates: start: 20200902
  45. TOCILIZUMAB. [Suspect]
     Active Substance: TOCILIZUMAB
     Indication: COVID-19 PNEUMONIA
     Dosage: ON 03/SEP/2020, AT 09:39 MOST RECENT DOSE OF BLINDED TOCILIZUMAB WAS ADMINISTERED PRIOR TO ADVERSE E
     Route: 042
     Dates: start: 20200902
  46. OMEPRAZOLE. [Concomitant]
     Active Substance: OMEPRAZOLE
     Dates: start: 20200906, end: 20200906
  47. AZITHROMYCIN ANHYDROUS. [Concomitant]
     Active Substance: AZITHROMYCIN ANHYDROUS
     Dates: start: 20200904, end: 20200906
  48. DEXAMETHASONE. [Concomitant]
     Active Substance: DEXAMETHASONE
     Dates: start: 20200902, end: 20200902
  49. CODEINE [Concomitant]
     Active Substance: CODEINE
     Indication: COVID-19
  50. DIPYRONE [Concomitant]
     Active Substance: DIPYRONE
     Dates: start: 20200911, end: 20200911
  51. DIPYRONE [Concomitant]
     Active Substance: DIPYRONE
     Dates: start: 20200915, end: 20200917
  52. PRECEDEX [Concomitant]
     Active Substance: DEXMEDETOMIDINE HYDROCHLORIDE
     Dates: start: 20200902, end: 20200902
  53. PRECEDEX [Concomitant]
     Active Substance: DEXMEDETOMIDINE HYDROCHLORIDE
     Dates: start: 20200916, end: 20200922
  54. BROMOPRIDE [Concomitant]
     Active Substance: BROMOPRIDE
     Dates: start: 20200902, end: 20200922
  55. FENTANYL. [Concomitant]
     Active Substance: FENTANYL
     Indication: SEDATION
     Dates: start: 20200903, end: 20200908
  56. NORADRENALINE [Concomitant]
     Active Substance: NOREPINEPHRINE
     Indication: HYPOTENSION
     Dates: start: 20200903, end: 20200908
  57. NORADRENALINE [Concomitant]
     Active Substance: NOREPINEPHRINE
     Indication: COVID-19
     Dates: start: 20200914, end: 20200914
  58. INSULIN REGULAR [Concomitant]
     Active Substance: INSULIN NOS
     Indication: HYPERGLYCAEMIA
     Dates: start: 20200904, end: 20200904
  59. QUETIAPINE. [Concomitant]
     Active Substance: QUETIAPINE
     Dates: start: 20200913, end: 20200922
  60. OXYGEN. [Concomitant]
     Active Substance: OXYGEN
     Dosage: 9 L/MIN
     Route: 055
     Dates: start: 20200902
  61. OXYGEN. [Concomitant]
     Active Substance: OXYGEN
     Dosage: 8 L/MIN
     Route: 055
     Dates: start: 20200917
  62. OXYGEN. [Concomitant]
     Active Substance: OXYGEN
     Dosage: 7 L/MIN SUBSEQUENT DOSES ON 20/SEP/2020
     Route: 055
     Dates: start: 20200915
  63. OXYGEN. [Concomitant]
     Active Substance: OXYGEN
     Route: 007
     Dates: start: 20200909
  64. OMEPRAZOLE. [Concomitant]
     Active Substance: OMEPRAZOLE
     Indication: PROPHYLAXIS AGAINST GASTROINTESTINAL ULCER
     Dates: start: 20200902
  65. DEXTROKETAMINE [Concomitant]
     Indication: SEDATION
     Dates: start: 20200903, end: 20200903
  66. DEXTROKETAMINE [Concomitant]
     Dates: start: 20200913, end: 20200913
  67. ROCURONIUM [Concomitant]
     Active Substance: ROCURONIUM BROMIDE
     Indication: SEDATION
     Dates: start: 20200904, end: 20200906
  68. METHYLPREDNISOLONE. [Concomitant]
     Active Substance: METHYLPREDNISOLONE
     Indication: COVID-19 PNEUMONIA
     Dates: start: 20200905, end: 20200908
  69. METHYLPREDNISOLONE. [Concomitant]
     Active Substance: METHYLPREDNISOLONE
     Dates: start: 20200910, end: 20200922
  70. MORPHINE [Concomitant]
     Active Substance: MORPHINE
     Indication: DYSPNOEA
     Dates: start: 20200915, end: 20200916
  71. MORPHINE [Concomitant]
     Active Substance: MORPHINE
     Dates: start: 20200921, end: 20200921
  72. POLYMYXIN [Concomitant]
     Active Substance: POLYMYXIN
     Indication: PNEUMONIA
     Dosage: 9  AMPULE
     Dates: start: 20200915, end: 20200915
  73. MEROPENEM. [Concomitant]
     Active Substance: MEROPENEM
     Dates: start: 20200922, end: 20200922
  74. VANCOMYCIN [Concomitant]
     Active Substance: VANCOMYCIN
     Dates: start: 20200915, end: 20200916
  75. PROPOFOL. [Concomitant]
     Active Substance: PROPOFOL
     Dates: start: 20200908, end: 20200908
  76. OXYGEN. [Concomitant]
     Active Substance: OXYGEN
     Dosage: 4 L/MIN SUBSEQUENT DOSES ON 21/SEP/2020, 10/SEP/2020, 20/SEP/2020
     Route: 055
     Dates: start: 20200919
  77. OXYGEN. [Concomitant]
     Active Substance: OXYGEN
     Dosage: 5 L/MIN
     Route: 055
     Dates: start: 20200917
  78. LIDOCAINE. [Concomitant]
     Active Substance: LIDOCAINE
     Dates: start: 20200903, end: 20200903
  79. LIDOCAINE. [Concomitant]
     Active Substance: LIDOCAINE
     Dates: start: 20200922, end: 20200922
  80. OXYGEN. [Concomitant]
     Active Substance: OXYGEN
     Dosage: 12 L/MIN
     Route: 055
     Dates: start: 20200921
  81. REMDESIVIR. [Suspect]
     Active Substance: REMDESIVIR
     Indication: COVID-19 PNEUMONIA
     Dosage: ON 11/SEP/2020, AT 3:15 MOST RECENT DOSE OF INTRAVENOUS REMDESIVIR (100 ML) PRIOR TO ADVERSE EVENT A
     Route: 042
     Dates: start: 20200902
  82. CEFTRIAXONE. [Concomitant]
     Active Substance: CEFTRIAXONE
     Indication: ANTIBIOTIC PROPHYLAXIS
     Dates: start: 20200902, end: 20200909
  83. ENOXAPARIN [Concomitant]
     Active Substance: ENOXAPARIN
     Indication: THROMBOSIS PROPHYLAXIS
     Dates: start: 20200902, end: 20200907
  84. AZITHROMYCIN ANHYDROUS. [Concomitant]
     Active Substance: AZITHROMYCIN ANHYDROUS
     Indication: ANTIBIOTIC PROPHYLAXIS
     Dates: start: 20200902, end: 20200902
  85. AZITHROMYCIN ANHYDROUS. [Concomitant]
     Active Substance: AZITHROMYCIN ANHYDROUS
     Dates: start: 20200908, end: 20200908
  86. DEXAMETHASONE. [Concomitant]
     Active Substance: DEXAMETHASONE
     Indication: COVID-19 PNEUMONIA
     Dates: start: 20200902, end: 20200904
  87. SUCCINYLCHOLINE [Concomitant]
     Active Substance: SUCCINYLCHOLINE
     Indication: NEUROMUSCULAR BLOCKADE
     Dates: start: 20200903, end: 20200903
  88. FENTANYL. [Concomitant]
     Active Substance: FENTANYL
     Dates: start: 20200922, end: 20200922
  89. QUETIAPINE. [Concomitant]
     Active Substance: QUETIAPINE
     Dates: start: 20200906, end: 20200908
  90. QUETIAPINE. [Concomitant]
     Active Substance: QUETIAPINE
     Dates: start: 20200909, end: 20200913
  91. CIMETIDINE [Concomitant]
     Active Substance: CIMETIDINE
     Dates: start: 20200917, end: 20200923
  92. PROPOFOL. [Concomitant]
     Active Substance: PROPOFOL
     Dates: start: 20200906, end: 20200906
  93. OXYGEN. [Concomitant]
     Active Substance: OXYGEN
     Route: 007
     Dates: start: 20200905
  94. OXYGEN. [Concomitant]
     Active Substance: OXYGEN
     Dosage: 10 L/MIN
     Route: 055
     Dates: start: 20200903
  95. OXYGEN. [Concomitant]
     Active Substance: OXYGEN
     Dosage: 3 L/MIN
     Route: 055
     Dates: start: 20200918
  96. OXYGEN. [Concomitant]
     Active Substance: OXYGEN
     Dosage: 4 L/MIN
     Route: 055
     Dates: start: 20200918
  97. OXYGEN. [Concomitant]
     Active Substance: OXYGEN
     Dosage: 15 L/MIN
     Route: 055
     Dates: start: 20200911

REACTIONS (4)
  - Septic shock [Fatal]
  - Pneumonia [Not Recovered/Not Resolved]
  - Obstructive shock [Fatal]
  - Pneumothorax [Not Recovered/Not Resolved]

NARRATIVE: CASE EVENT DATE: 20200916
